FAERS Safety Report 6391943-0 (Version None)
Quarter: 2009Q4

REPORT INFORMATION
  Report Type: 
  Country: None (occurrence: None)
  Receive Date: 20091007
  Receipt Date: 20091001
  Transmission Date: 20100525
  Serious: Yes (Other)
  Sender: FDA-Public Use
  Company Number: A0809964A

PATIENT
  Age: 54 Year
  Sex: Male

DRUGS (2)
  1. AVODART [Suspect]
     Dosage: .5MG ALTERNATE DAYS
     Route: 048
     Dates: start: 20060101
  2. NO CONCURRENT MEDICATION [Concomitant]

REACTIONS (4)
  - COLITIS ULCERATIVE [None]
  - GLOSSODYNIA [None]
  - OFF LABEL USE [None]
  - TONGUE ULCERATION [None]
